FAERS Safety Report 5947723-0 (Version None)
Quarter: 2008Q4

REPORT INFORMATION
  Report Type: 
  Country: None (occurrence: None)
  Receive Date: 20081110
  Receipt Date: 20081110
  Transmission Date: 20090506
  Serious: No
  Sender: FDA-Public Use
  Company Number: None

PATIENT
  Sex: Female
  Weight: 72.5755 kg

DRUGS (1)
  1. VOLTAREN [Suspect]
     Indication: ARTHRALGIA
     Dosage: 1 DOSE
     Dates: start: 20081031, end: 20081031

REACTIONS (3)
  - INFLUENZA LIKE ILLNESS [None]
  - JAUNDICE [None]
  - URINE COLOUR ABNORMAL [None]
